FAERS Safety Report 9476669 (Version 2)
Quarter: 2013Q3

REPORT INFORMATION
  Report Type: Spontaneous
  Country: US (occurrence: US)
  Receive Date: 20130826
  Receipt Date: 20130826
  Transmission Date: 20140515
  Serious: No
  Sender: FDA-Public Use
  Company Number: US-BRISTOL-MYERS SQUIBB COMPANY-18901744

PATIENT
  Age: 35 Year
  Sex: Female
  Weight: 51.7 kg

DRUGS (6)
  1. KENALOG INJ [Suspect]
     Dates: start: 201301
  2. PROAIR HFA [Concomitant]
     Dosage: 1 DF:MCG/ACT AEROSOL SOLN 2 INHALATION
     Route: 055
     Dates: start: 20110419
  3. SINGULAIR [Concomitant]
     Dosage: TAB
     Route: 048
     Dates: start: 20120515
  4. DITROPAN XL [Concomitant]
     Dosage: TAB.?ER 24HR
     Route: 048
  5. BENADRYL [Concomitant]
     Dosage: 2% SOLUTION
  6. ALLEGRA [Concomitant]
     Dosage: TAB
     Route: 048

REACTIONS (1)
  - Lipoatrophy [Unknown]
